FAERS Safety Report 7679650-5 (Version None)
Quarter: 2011Q3

REPORT INFORMATION
  Report Type: 
  Country: None (occurrence: None)
  Receive Date: 20110812
  Receipt Date: 20110809
  Transmission Date: 20111222
  Serious: Yes (Death)
  Sender: FDA-Public Use
  Company Number: DE-ELI_LILLY_AND_COMPANY-DE201107007874

PATIENT
  Sex: Male

DRUGS (1)
  1. ALIMTA [Suspect]
     Indication: LUNG ADENOCARCINOMA
     Dosage: 500 MG/M2, UNKNOWN
     Route: 042
     Dates: start: 20110616, end: 20110616

REACTIONS (4)
  - THROMBOCYTOPENIA [None]
  - MYOCARDIAL INFARCTION [None]
  - CAMPYLOBACTER INFECTION [None]
  - LEUKOPENIA [None]
